FAERS Safety Report 4921349-X (Version None)
Quarter: 2006Q1

REPORT INFORMATION
  Report Type: 
  Country: None (occurrence: None)
  Receive Date: 20060222
  Receipt Date: 20060222
  Transmission Date: 20060701
  Serious: Yes (Other)
  Sender: FDA-Public Use
  Company Number: None

PATIENT
  Age: 74 Year
  Sex: Male

DRUGS (9)
  1. METHYLCELLULOSE SUSPENSION REGULAR (METHYLCELLULOSE) [Suspect]
     Indication: CONSTIPATION
     Dosage: THREE TIMES PER DAY / ORAL
     Route: 048
     Dates: start: 20050101
  2. FLUTICASONE PROPIONATE [Concomitant]
  3. METOPROLOL SUCCINATE [Concomitant]
  4. ATORVASTATIN CALCIUM [Concomitant]
  5. TRIAMTERENE AND HYDROCHLOROTHIAZIDE [Concomitant]
  6. MECLIZINE [Concomitant]
  7. ASCORBIC ACID [Concomitant]
  8. FISH OIL [Concomitant]
  9. CENTRUM SILVER [Concomitant]

REACTIONS (2)
  - CHROMATURIA [None]
  - URINARY INCONTINENCE [None]
